FAERS Safety Report 4576148-8 (Version None)
Quarter: 2005Q1

REPORT INFORMATION
  Report Type: 
  Country: None (occurrence: None)
  Receive Date: 20050201
  Receipt Date: 20050201
  Transmission Date: 20050727
  Serious: Yes (Hospitalization)
  Sender: FDA-Public Use
  Company Number: None

PATIENT
  Age: 59 Year
  Sex: Female
  Weight: 64.41 kg

DRUGS (4)
  1. CAPECITABINE [Suspect]
     Indication: RECTAL CANCER
     Dosage: 600 MG/M2    2X/DAY    ORAL
     Route: 048
     Dates: start: 20050110, end: 20050126
  2. IRINOTECAN HCL [Suspect]
     Dosage: 50MG/M2   1 HOUR,/WEE     INTRAVENOU
     Route: 042
     Dates: start: 20050110, end: 20050125
  3. ZOCOR [Concomitant]
  4. ZOLOFT [Concomitant]

REACTIONS (3)
  - DEHYDRATION [None]
  - ENTERITIS [None]
  - POST PROCEDURAL DIARRHOEA [None]
